FAERS Safety Report 7327900-7 (Version None)
Quarter: 2011Q1

REPORT INFORMATION
  Report Type: 
  Country: None (occurrence: None)
  Receive Date: 20110224
  Receipt Date: 20110224
  Transmission Date: 20110831
  Serious: Yes (Hospitalization)
  Sender: FDA-Public Use
  Company Number: None

PATIENT
  Age: 71 Year
  Sex: Female
  Weight: 66.2252 kg

DRUGS (2)
  1. VECTBIX R PANITUMUMAB [Suspect]
     Indication: COLON CANCER METASTATIC
     Dates: start: 20101025
  2. VECTBIX R PANITUMUMAB [Suspect]
     Indication: COLON CANCER METASTATIC
     Dates: start: 20091229, end: 20100817

REACTIONS (4)
  - PSYCHOTIC DISORDER [None]
  - AGITATION [None]
  - PHOTOPHOBIA [None]
  - CONFUSIONAL STATE [None]
